FAERS Safety Report 7308822-4 (Version None)
Quarter: 2011Q1

REPORT INFORMATION
  Report Type: 
  Country: None (occurrence: None)
  Receive Date: 20110223
  Receipt Date: 20110218
  Transmission Date: 20110831
  Serious: Yes (Death, Hospitalization, Other)
  Sender: FDA-Public Use
  Company Number: US-PFIZER INC-2011036698

PATIENT
  Sex: Female
  Weight: 115.19 kg

DRUGS (12)
  1. NEURONTIN [Suspect]
     Dosage: 300 MG, 3X/DAY
     Route: 048
  2. NIFEDIPINE [Concomitant]
     Dosage: UNK
  3. SOLU-MEDROL [Concomitant]
     Dosage: UNK
  4. HEPARIN [Concomitant]
     Dosage: UNK
  5. VENLAFAXINE [Concomitant]
     Dosage: UNK
  6. ISOSORBIDE [Concomitant]
     Dosage: UNK
  7. SIMVASTATIN [Concomitant]
     Dosage: UNK
  8. VANCOMYCIN [Concomitant]
     Dosage: UNK
  9. SPIRIVA [Concomitant]
     Dosage: UNK
  10. ALBUTEROL [Concomitant]
     Dosage: UNK
  11. NICOTINE [Concomitant]
     Dosage: UNK
  12. SEROQUEL [Concomitant]
     Dosage: UNK

REACTIONS (2)
  - RESPIRATORY DISTRESS [None]
  - DEATH [None]
